FAERS Safety Report 7953367-1 (Version None)
Quarter: 2011Q4

REPORT INFORMATION
  Report Type: 
  Country: None (occurrence: None)
  Receive Date: 20111202
  Receipt Date: 20111128
  Transmission Date: 20120403
  Serious: Yes (Hospitalization)
  Sender: FDA-Public Use
  Company Number: US-BIOGENIDEC-2011BI042203

PATIENT
  Age: 60 Year
  Sex: Female

DRUGS (1)
  1. AVONEX [Suspect]
     Indication: MULTIPLE SCLEROSIS
     Route: 030
     Dates: start: 20000101

REACTIONS (6)
  - PNEUMONIA [None]
  - PULMONARY HAEMORRHAGE [None]
  - BACK DISORDER [None]
  - MEMORY IMPAIRMENT [None]
  - BACK PAIN [None]
  - SLEEP APNOEA SYNDROME [None]
